FAERS Safety Report 6601181-1 (Version None)
Quarter: 2010Q1

REPORT INFORMATION
  Report Type: 
  Country: None (occurrence: None)
  Receive Date: 20100225
  Receipt Date: 20100218
  Transmission Date: 20100710
  Serious: Yes (Hospitalization)
  Sender: FDA-Public Use
  Company Number: US-JNJFOC-20091201881

PATIENT
  Sex: Female
  Weight: 90.72 kg

DRUGS (8)
  1. INFLIXIMAB [Suspect]
     Indication: PSORIASIS
     Route: 042
  2. LEVEMIR [Concomitant]
  3. ZOLPIDEM [Concomitant]
  4. LASIX [Concomitant]
  5. LASIX [Concomitant]
  6. POTASSIUM CHLORIDE [Concomitant]
     Route: 048
  7. SPIRONOLACTONE [Concomitant]
     Route: 048
  8. SIMPONI [Concomitant]
     Dosage: RECEIVED 1 DOSE

REACTIONS (5)
  - BRONCHIECTASIS [None]
  - COR PULMONALE [None]
  - HAEMOPTYSIS [None]
  - RENAL FAILURE ACUTE [None]
  - SQUAMOUS CELL CARCINOMA [None]
